FAERS Safety Report 8977727 (Version 1)
Quarter: 2012Q4

REPORT INFORMATION
  Report Type: Report from Study
  Country: US (occurrence: US)
  Receive Date: 20121220
  Receipt Date: 20121220
  Transmission Date: 20130627
  Serious: Yes (Other)
  Sender: FDA-Public Use
  Company Number: US-ABBOTT-12P-163-1022633-00

PATIENT
  Age: 46 Year
  Sex: Male
  Weight: 84.9 kg

DRUGS (4)
  1. HUMIRA [Suspect]
     Indication: CROHN^S DISEASE
     Dates: start: 201207, end: 201207
  2. HUMIRA [Suspect]
     Dates: start: 201207, end: 201207
  3. HUMIRA [Suspect]
     Dates: start: 201207
  4. HUMIRA [Suspect]
     Dates: start: 20121213

REACTIONS (3)
  - Intestinal stenosis [Recovered/Resolved]
  - Weight decreased [Recovered/Resolved]
  - Intestinal stenosis [Recovered/Resolved]
